FAERS Safety Report 13639834 (Version 1)
Quarter: 2017Q2

REPORT INFORMATION
  Report Type: Spontaneous
  Country: US (occurrence: US)
  Receive Date: 20170609
  Receipt Date: 20170609
  Transmission Date: 20170830
  Serious: No
  Sender: FDA-Public Use
  Company Number: US-ROCHE-1444681

PATIENT
  Age: 52 Year
  Sex: Male

DRUGS (3)
  1. ZOLOFT [Concomitant]
     Active Substance: SERTRALINE HYDROCHLORIDE
     Route: 065
     Dates: start: 20140615
  2. FLEXERIL [Concomitant]
     Active Substance: CYCLOBENZAPRINE HYDROCHLORIDE
     Route: 065
     Dates: start: 20140615
  3. KLONOPIN [Suspect]
     Active Substance: CLONAZEPAM
     Indication: ABDOMINAL DISCOMFORT
     Dosage: 1 TAB FRI, HALF TAB SAT AND SUN, QUARTER TAB MON
     Route: 065
     Dates: start: 20140617, end: 201407

REACTIONS (8)
  - Headache [Not Recovered/Not Resolved]
  - Abdominal pain upper [Unknown]
  - Feeling jittery [Not Recovered/Not Resolved]
  - Withdrawal syndrome [Unknown]
  - Nervousness [Not Recovered/Not Resolved]
  - Abnormal dreams [Unknown]
  - Wrong technique in product usage process [Unknown]
  - Attention deficit/hyperactivity disorder [Unknown]

NARRATIVE: CASE EVENT DATE: 20140710
